FAERS Safety Report 18793952 (Version 4)
Quarter: 2025Q1

REPORT INFORMATION
  Report Type: Spontaneous
  Country: US (occurrence: US)
  Receive Date: 20210127
  Receipt Date: 20250203
  Transmission Date: 20250408
  Serious: Yes (Hospitalization)
  Sender: BRISTOL-MYERS SQUIBB COMPANY
  Company Number: US-BRISTOL-MYERS SQUIBB COMPANY-BMS-2021-007625

PATIENT
  Age: 33 Year
  Sex: Male

DRUGS (1)
  1. DASATINIB [Suspect]
     Active Substance: DASATINIB
     Indication: Chronic myeloid leukaemia
     Dosage: 140 MILLIGRAM, QD
     Route: 048
     Dates: start: 20210109

REACTIONS (3)
  - Fatigue [Unknown]
  - Feeling hot [Unknown]
  - Hospitalisation [Unknown]
